FAERS Safety Report 4378636-6 (Version None)
Quarter: 2004Q2

REPORT INFORMATION
  Report Type: 
  Country: None (occurrence: None)
  Receive Date: 20040610
  Receipt Date: 20040524
  Transmission Date: 20050107
  Serious: Yes (Hospitalization)
  Sender: FDA-Public Use
  Company Number: 2004SE02899

PATIENT
  Age: 72 Year
  Sex: Male
  Weight: 57 kg

DRUGS (6)
  1. BLOPRESS [Suspect]
     Indication: HYPERTENSION
     Dosage: 8 MG DAILY PO
     Route: 048
     Dates: start: 20020911
  2. ANTIHYPERTENSIVES [Concomitant]
  3. CALCIUM CHANNEL BLOCKERS [Concomitant]
  4. SULFONAMIDES, UREA DERIVATIVES [Concomitant]
  5. ALPHA GLUCOSIDASE INHIBITORS [Concomitant]
  6. CHOLESTEROL- AND TRIGLYCERIDE REDUCERS [Concomitant]

REACTIONS (2)
  - CHOLECYSTITIS CHRONIC [None]
  - CONDITION AGGRAVATED [None]
